FAERS Safety Report 9728950 (Version 1)
Quarter: 2013Q4

REPORT INFORMATION
  Report Type: Spontaneous
  Country: BE (occurrence: BE)
  Receive Date: 20131204
  Receipt Date: 20131204
  Transmission Date: 20140711
  Serious: Yes (Other)
  Sender: FDA-Public Use
  Company Number: BE-PFIZER INC-2013344763

PATIENT
  Age: 63 Year
  Sex: Male

DRUGS (6)
  1. CORDARONE [Suspect]
     Dosage: 200 MG, DAILY
     Route: 048
  2. ALDACTONE [Concomitant]
     Dosage: UNK
  3. TRITACE [Concomitant]
     Dosage: UNK
  4. EMCONCOR [Concomitant]
     Dosage: UNK
  5. MARCOUMAR [Concomitant]
     Dosage: UNK
  6. ASAFLOW [Concomitant]
     Dosage: UNK

REACTIONS (2)
  - Hypothyroidism [Not Recovered/Not Resolved]
  - Myalgia [Not Recovered/Not Resolved]
